FAERS Safety Report 7449630-3 (Version None)
Quarter: 2011Q1

REPORT INFORMATION
  Report Type: 
  Country: None (occurrence: None)
  Receive Date: 20110302
  Receipt Date: 20101111
  Transmission Date: 20110831
  Serious: No
  Sender: FDA-Public Use
  Company Number: 022000

PATIENT
  Sex: Female
  Weight: 70.1 kg

DRUGS (1)
  1. CIMZIA [Suspect]
     Indication: CROHN'S DISEASE
     Dosage: 2 SHOTS MONTHLY SUBCUTANEOUS
     Route: 058
     Dates: start: 20101001

REACTIONS (3)
  - BLEPHAROSPASM [None]
  - PYREXIA [None]
  - FISTULA [None]
